FAERS Safety Report 4295217-3 (Version None)
Quarter: 2004Q1

REPORT INFORMATION
  Report Type: 
  Country: None (occurrence: None)
  Receive Date: 20040216
  Receipt Date: 20030410
  Transmission Date: 20041129
  Serious: No
  Sender: FDA-Public Use
  Company Number: US-GLAXOSMITHKLINE-A0404534A

PATIENT
  Age: 9 Year
  Sex: Male

DRUGS (2)
  1. LAMICTAL [Suspect]
     Route: 048
  2. TEGRETOL [Concomitant]

REACTIONS (4)
  - DISTURBANCE IN ATTENTION [None]
  - MASTICATION DISORDER [None]
  - OBSESSIVE-COMPULSIVE DISORDER [None]
  - RESTLESSNESS [None]
